FAERS Safety Report 5143251-3 (Version None)
Quarter: 2006Q4

REPORT INFORMATION
  Report Type: 
  Country: None (occurrence: None)
  Receive Date: 20061103
  Receipt Date: 20061011
  Transmission Date: 20070319
  Serious: Yes (Hospitalization)
  Sender: FDA-Public Use
  Company Number: PHBS2006JP16010

PATIENT
  Age: 38 Year
  Sex: Male

DRUGS (7)
  1. MYCOPHENOLATE MOFETIL [Concomitant]
     Indication: RENAL TRANSPLANT
  2. ALLOPURINOL [Suspect]
     Indication: BLOOD URIC ACID INCREASED
     Route: 048
  3. AZATHIOPRINE [Suspect]
     Indication: RENAL TRANSPLANT
  4. SIMULECT [Concomitant]
     Indication: RENAL TRANSPLANT
     Dates: start: 20050701
  5. TACROLIMUS [Concomitant]
     Indication: RENAL TRANSPLANT
     Route: 048
     Dates: start: 20050701, end: 20051201
  6. CYCLOSPORINE [Suspect]
     Indication: RENAL TRANSPLANT
     Route: 065
     Dates: start: 20051201
  7. METHYLPREDNISOLONE 4MG TAB [Concomitant]
     Indication: RENAL TRANSPLANT
     Dates: start: 20050701

REACTIONS (7)
  - BONE MARROW FAILURE [None]
  - COMPLICATIONS OF TRANSPLANTED KIDNEY [None]
  - DRUG INTERACTION [None]
  - MALAISE [None]
  - PANCYTOPENIA [None]
  - POLYOMAVIRUS-ASSOCIATED NEPHROPATHY [None]
  - RENAL IMPAIRMENT [None]
